FAERS Safety Report 14852911 (Version 1)
Quarter: 2018Q2

REPORT INFORMATION
  Report Type: Spontaneous
  Country: NO (occurrence: NO)
  Receive Date: 20180507
  Receipt Date: 20180507
  Transmission Date: 20180711
  Serious: Yes (Hospitalization)
  Sender: FDA-Public Use
  Company Number: IND-NO-009507513-1804NOR012759

PATIENT
  Age: 63 Year
  Sex: Male

DRUGS (1)
  1. ARCOXIA [Suspect]
     Active Substance: ETORICOXIB
     Indication: BACK PAIN
     Dosage: DOSAGE AND DURATION OF TREATMENT NOT KNOWN, BUT TREATMENT PERIODE GIVEN AS ^SHORT^.
     Route: 048
     Dates: start: 201711

REACTIONS (1)
  - Liver injury [Recovering/Resolving]

NARRATIVE: CASE EVENT DATE: 20171227
